FAERS Safety Report 9171709 (Version 1)
Quarter: 2013Q1

REPORT INFORMATION
  Report Type: Spontaneous
  Country: US (occurrence: None)
  Receive Date: 20130318
  Receipt Date: 20130318
  Transmission Date: 20140127
  Serious: Yes (Death, Other)
  Sender: FDA-Public Use
  Company Number: AG-2013-0848

PATIENT
  Age: 14 Year
  Sex: 0

DRUGS (4)
  1. BUSULFAN [Suspect]
     Indication: BONE MARROW TRANSPLANT
  2. ETOPOSIDE [Suspect]
     Indication: BONE MARROW TRANSPLANT
  3. CYCLOPHOSPHAMIDE [Suspect]
     Indication: BONE MARROW TRANSPLANT
  4. ANTI-THYMOCYTE GLOBULIN (RABBIT) NOS [Suspect]
     Indication: BONE MARROW TRANSPLANT

REACTIONS (4)
  - Graft versus host disease [None]
  - Pneumonitis [None]
  - Acute respiratory distress syndrome [None]
  - Multi-organ failure [None]
